FAERS Safety Report 9269554 (Version 3)
Quarter: 2014Q1

REPORT INFORMATION
  Report Type: Spontaneous
  Country: GB (occurrence: GB)
  Receive Date: 20130503
  Receipt Date: 20140331
  Transmission Date: 20141002
  Serious: Yes (Other)
  Sender: FDA-Public Use
  Company Number: GB-ELI_LILLY_AND_COMPANY-GB201304008038

PATIENT
  Sex: 0

DRUGS (20)
  1. OLANZAPINE [Suspect]
     Dosage: 10 MG, QD
     Route: 064
  2. OLANZAPINE [Suspect]
     Dosage: 10 MG, QD
     Route: 064
  3. OLANZAPINE [Suspect]
     Dosage: 15 MG, QD
  4. OLANZAPINE [Suspect]
     Dosage: 15 MG, QD
  5. OLANZAPINE [Suspect]
     Dosage: 20 MG, QD
  6. OLANZAPINE [Suspect]
     Dosage: 20 MG, QD
  7. SODIUM VALPROATE [Concomitant]
     Dosage: 1000 MG, QD
     Route: 064
  8. SODIUM VALPROATE [Concomitant]
     Dosage: 1000 MG, QD
     Route: 064
  9. PROMETHAZINE [Concomitant]
     Dosage: 25 MG, QID
     Route: 064
  10. PROMETHAZINE [Concomitant]
     Dosage: 25 MG, QID
     Route: 064
  11. DIAZEPAM [Concomitant]
     Dosage: 5 MG, TID
     Route: 064
  12. DIAZEPAM [Concomitant]
     Dosage: 5 MG, TID
     Route: 064
  13. LITHIUM [Concomitant]
     Dosage: 400 MG, BID
     Route: 064
  14. LITHIUM [Concomitant]
     Dosage: 400 MG, BID
     Route: 064
  15. FOLIC ACID [Concomitant]
     Dosage: 5 MG, QD
     Route: 064
  16. FOLIC ACID [Concomitant]
     Dosage: 5 MG, QD
     Route: 064
  17. ETHANOL [Concomitant]
  18. ETHANOL [Concomitant]
  19. CANNABIS [Concomitant]
  20. CANNABIS [Concomitant]

REACTIONS (6)
  - Metabolic acidosis [Recovered/Resolved]
  - Foetal monitoring abnormal [Unknown]
  - Hyperinsulinaemia [Recovered/Resolved]
  - Foetal exposure during pregnancy [Unknown]
  - Small for dates baby [Unknown]
  - Foetal growth restriction [Unknown]
